FAERS Safety Report 25305139 (Version 1)
Quarter: 2025Q2

REPORT INFORMATION
  Report Type: Spontaneous
  Country: ES (occurrence: ES)
  Receive Date: 20250513
  Receipt Date: 20250513
  Transmission Date: 20250716
  Serious: Yes (Life-Threatening, Hospitalization, Other)
  Sender: CATALYST PHARMA
  Company Number: ES-CATALYSTPHARMACEUTICALPARTNERS-ES-CATA-25-00687

PATIENT
  Age: 24 Year
  Sex: Female

DRUGS (4)
  1. FYCOMPA [Suspect]
     Active Substance: PERAMPANEL
     Indication: Epilepsy
     Dosage: 4.0 MILLIGRAM(S) (4 MILLIGRAM(S), 1 IN 1 DAY)
     Route: 048
  2. FYCOMPA [Suspect]
     Active Substance: PERAMPANEL
     Dosage: 6.0 MILLIGRAM(S) (6 MILLIGRAM(S), 1 IN 1 DAY)
     Route: 048
  3. LACOSAMIDE [Suspect]
     Active Substance: LACOSAMIDE
     Indication: Epilepsy
     Dosage: 300.0 MILLIGRAM(S) (300 MILLIGRAM(S), 1 IN 1 DAY)
     Route: 065
  4. LACOSAMIDE [Suspect]
     Active Substance: LACOSAMIDE
     Dosage: 200.0 MILLIGRAM(S) (100 MILLIGRAM(S), 1 IN 12 HOUR)
     Route: 065

REACTIONS (4)
  - Neurogenic pulmonary oedema [Recovered/Resolved]
  - Acute respiratory failure [Unknown]
  - Altered state of consciousness [Unknown]
  - Seizure [Unknown]
